FAERS Safety Report 14447921 (Version 4)
Quarter: 2021Q4

REPORT INFORMATION
  Report Type: Report from Study
  Country: None (occurrence: CA)
  Receive Date: 20180126
  Receipt Date: 20211023
  Transmission Date: 20220303
  Serious: Yes (Death, Hospitalization)
  Sender: FDA-Public Use
  Company Number: CA-ABBVIE-18S-028-2235929-00

PATIENT
  Age: 67 Year
  Sex: Male
  Weight: 112 kg

DRUGS (7)
  1. LUPRON DEPOT [Suspect]
     Active Substance: LEUPROLIDE ACETATE
     Indication: Prostate cancer
     Route: 030
     Dates: start: 20171129
  2. ROSUVASTATIN [Concomitant]
     Active Substance: ROSUVASTATIN
     Indication: Product used for unknown indication
     Dates: start: 2014
  3. AMLODIPINE [Concomitant]
     Active Substance: AMLODIPINE BESYLATE
     Indication: Product used for unknown indication
     Dates: start: 2014
  4. HYDROMORPHCONTIN [Concomitant]
     Indication: Product used for unknown indication
     Dates: start: 2017
  5. PREDNISONE [Concomitant]
     Active Substance: PREDNISONE
     Indication: Product used for unknown indication
     Dates: start: 2017
  6. ABIRATERONE. [Concomitant]
     Active Substance: ABIRATERONE ACETATE
     Indication: Product used for unknown indication
     Dates: start: 2017
  7. ROSUVASTATIN/AMLODIPINE RATIOPHARM [Concomitant]
     Indication: Product used for unknown indication
     Dates: start: 2014

REACTIONS (8)
  - Sepsis [Fatal]
  - Diverticular perforation [Fatal]
  - Procedural pain [Unknown]
  - Abdominal pain lower [Unknown]
  - Spinal cord compression [Recovering/Resolving]
  - Dysstasia [Unknown]
  - Fall [Unknown]
  - Pain [Unknown]

NARRATIVE: CASE EVENT DATE: 20180101
